FAERS Safety Report 17515315 (Version 1)
Quarter: 2020Q1

REPORT INFORMATION
  Report Type: Spontaneous
  Country: FR (occurrence: FR)
  Receive Date: 20200309
  Receipt Date: 20200309
  Transmission Date: 20200409
  Serious: Yes (Hospitalization)
  Sender: FDA-Public Use
  Company Number: FR-TEVA-2020-FR-1195606

PATIENT
  Age: 68 Year
  Sex: Male
  Weight: 100 kg

DRUGS (2)
  1. CLOPIDOGREL (HYDROGENOSULFATE DE) [Suspect]
     Active Substance: CLOPIDOGREL BISULFATE
     Indication: ANGIOPLASTY
     Dosage: 75 MG
     Route: 048
     Dates: start: 20190708, end: 20200201
  2. KARDEGIC [Suspect]
     Active Substance: ASPIRIN DL-LYSINE
     Indication: ANGIOPLASTY
     Dosage: 75 MG
     Route: 048
     Dates: start: 20190708

REACTIONS (1)
  - Upper gastrointestinal haemorrhage [Recovered/Resolved]

NARRATIVE: CASE EVENT DATE: 20200201
